FAERS Safety Report 6646989-1 (Version None)
Quarter: 2010Q1

REPORT INFORMATION
  Report Type: 
  Country: None (occurrence: None)
  Receive Date: 20100323
  Receipt Date: 20100316
  Transmission Date: 20100710
  Serious: Yes (Disabling)
  Sender: FDA-Public Use
  Company Number: GB-PURDUE-GBR-2010-0006293

PATIENT
  Age: 38 Year
  Sex: Female

DRUGS (5)
  1. MORPHINE SULFATE [Suspect]
  2. CHAMPIX                            /05703002/ [Interacting]
     Indication: SMOKING CESSATION THERAPY
     Dosage: UNK
     Route: 048
     Dates: start: 20091023, end: 20091130
  3. ANAESTHETICS [Interacting]
     Indication: DRUG USE FOR UNKNOWN INDICATION
  4. TRAMADOL HCL [Concomitant]
  5. LANSOPRAZOLE [Concomitant]

REACTIONS (3)
  - DEPRESSED MOOD [None]
  - DRUG INTERACTION [None]
  - SUICIDAL IDEATION [None]
